FAERS Safety Report 8854976 (Version 1)
Quarter: 2012Q4

REPORT INFORMATION
  Report Type: 
  Country: JP (occurrence: JP)
  Receive Date: 20121023
  Receipt Date: 20121023
  Transmission Date: 20130627
  Serious: Yes (Hospitalization, Other)
  Sender: FDA-Public Use
  Company Number: JP-UCBSA-069088

PATIENT
  Age: 50 Year
  Sex: Male

DRUGS (5)
  1. ALPROSTADIL ALFADEX [Suspect]
     Indication: ARTERIAL OCCLUSIVE DISEASE
     Route: 013
     Dates: start: 200305
  2. ALPROSTADIL ALFADEX [Suspect]
     Indication: ARTERIAL OCCLUSIVE DISEASE
     Route: 013
     Dates: start: 200008, end: 200211
  3. GASTER [Suspect]
     Route: 048
  4. CALCIUM CARBONATE [Suspect]
     Dosage: 1 TABLET IN THE AFTERNOON AND 2 TABLETS IN THE EVENING, DAILY DOSE: 1500MG
     Route: 048
  5. WARFARIN POTASSIUM [Suspect]

REACTIONS (7)
  - Gastrointestinal haemorrhage [Unknown]
  - Blood pressure decreased [Unknown]
  - Osteomyelitis [Unknown]
  - Staphylococcal infection [Unknown]
  - Hyperphosphataemia [Recovering/Resolving]
  - Pruritus [Unknown]
  - Blood parathyroid hormone increased [Unknown]
